FAERS Safety Report 7499564-3 (Version None)
Quarter: 2011Q2

REPORT INFORMATION
  Report Type: 
  Country: None (occurrence: None)
  Receive Date: 20110524
  Receipt Date: 20110510
  Transmission Date: 20111010
  Serious: Yes (Other)
  Sender: FDA-Public Use
  Company Number: US-JNJFOC-20110504865

PATIENT
  Sex: Female
  Weight: 66.23 kg

DRUGS (1)
  1. REMICADE [Suspect]
     Indication: RHEUMATOID ARTHRITIS
     Route: 042
     Dates: start: 20080101, end: 20080101

REACTIONS (6)
  - HYPERHIDROSIS [None]
  - DYSPNOEA [None]
  - INFUSION RELATED REACTION [None]
  - CARDIAC ARREST [None]
  - CHEST PAIN [None]
  - VOMITING [None]
